FAERS Safety Report 6600127-X (Version None)
Quarter: 2010Q1

REPORT INFORMATION
  Report Type: 
  Country: None (occurrence: None)
  Receive Date: 20100217
  Receipt Date: 20100201
  Transmission Date: 20100710
  Serious: Yes (Hospitalization, Other)
  Sender: FDA-Public Use
  Company Number: 2010000378

PATIENT
  Sex: Male

DRUGS (8)
  1. TARCEVA [Suspect]
     Indication: NON-SMALL CELL LUNG CANCER
     Dosage: 150 MG, ORAL; 150 MG, ORAL; 100 MG, ORAL
     Route: 048
     Dates: start: 20091117, end: 20091124
  2. TARCEVA [Suspect]
     Indication: NON-SMALL CELL LUNG CANCER
     Dosage: 150 MG, ORAL; 150 MG, ORAL; 100 MG, ORAL
     Route: 048
     Dates: start: 20090902
  3. TARCEVA [Suspect]
     Indication: NON-SMALL CELL LUNG CANCER
     Dosage: 150 MG, ORAL; 150 MG, ORAL; 100 MG, ORAL
     Route: 048
     Dates: start: 20100120
  4. DURAGESIC-100 [Concomitant]
  5. OXYCODONE HCL [Concomitant]
  6. NAPROXEN [Concomitant]
  7. BISOPROLOL FUMARATE [Concomitant]
  8. CANDESARTAN CILEXETIL [Concomitant]

REACTIONS (9)
  - CHOROIDITIS [None]
  - DIARRHOEA [None]
  - EYE DISORDER [None]
  - LOWER RESPIRATORY TRACT INFECTION [None]
  - MALIGNANT NEOPLASM PROGRESSION [None]
  - METASTASES TO SKIN [None]
  - NAUSEA [None]
  - NON-SMALL CELL LUNG CANCER [None]
  - ORAL PAIN [None]
